FAERS Safety Report 22041909 (Version 8)
Quarter: 2024Q1

REPORT INFORMATION
  Report Type: Spontaneous
  Country: US (occurrence: US)
  Receive Date: 20230227
  Receipt Date: 20240201
  Transmission Date: 20240410
  Serious: Yes (Other)
  Sender: FDA-Public Use
  Company Number: US-PFIZER INC-PV202300036483

PATIENT
  Age: 78 Year
  Sex: Male
  Weight: 76.19 kg

DRUGS (6)
  1. VYNDAMAX [Suspect]
     Active Substance: TAFAMIDIS
     Indication: Amyloidosis
     Dosage: 61 MG, DAILY
     Route: 048
     Dates: start: 20230112
  2. VYNDAMAX [Suspect]
     Active Substance: TAFAMIDIS
     Indication: Cardiac amyloidosis
     Dosage: 61 MG, 1X/DAY
     Route: 048
  3. NOVELON [DROSPIRENONE;ETHINYLESTRADIOL] [Concomitant]
     Dosage: UNK
  4. ASPIRIN [Concomitant]
     Active Substance: ASPIRIN
     Dosage: UNK
  5. ALBUTEROL [Concomitant]
     Active Substance: ALBUTEROL
     Dosage: UNK
  6. FUROSEMIDE [Concomitant]
     Active Substance: FUROSEMIDE
     Dosage: 20 G, AS NEEDED, DAILY

REACTIONS (23)
  - Fall [Recovered/Resolved]
  - Exophthalmos [Unknown]
  - Eye infection [Recovered/Resolved]
  - Visual impairment [Recovered/Resolved]
  - Illness [Recovered/Resolved]
  - Faeces discoloured [Recovered/Resolved]
  - Energy increased [Recovered/Resolved]
  - Fatigue [Recovered/Resolved]
  - Therapeutic response unexpected [Recovered/Resolved]
  - Limb injury [Recovered/Resolved]
  - Skin laceration [Recovered/Resolved]
  - Inflammation [Unknown]
  - Impaired quality of life [Unknown]
  - Cardiac disorder [Unknown]
  - Nasal discharge discolouration [Unknown]
  - Body height decreased [Unknown]
  - Physical abuse [Unknown]
  - Migraine [Unknown]
  - Chest pain [Unknown]
  - Asthenopia [Unknown]
  - Stress [Unknown]
  - Malaise [Unknown]
  - Asthma [Unknown]
